FAERS Safety Report 4781808-X (Version None)
Quarter: 2005Q3

REPORT INFORMATION
  Report Type: 
  Country: None (occurrence: None)
  Receive Date: 20050927
  Receipt Date: 20050912
  Transmission Date: 20060218
  Serious: Yes (Hospitalization, Other)
  Sender: FDA-Public Use
  Company Number: USA0509107961

PATIENT
  Age: 60 Year
  Sex: Female

DRUGS (1)
  1. CYMBALTA [Suspect]
     Indication: DEPRESSION
     Dosage: 60 MG

REACTIONS (3)
  - BLOOD COPPER INCREASED [None]
  - NAUSEA [None]
  - VOMITING [None]
